FAERS Safety Report 10248697 (Version 2)
Quarter: 2014Q2

REPORT INFORMATION
  Report Type: Spontaneous
  Country: US (occurrence: US)
  Receive Date: 20140620
  Receipt Date: 20140620
  Transmission Date: 20141212
  Serious: Yes (Death, Hospitalization)
  Sender: FDA-Public Use
  Company Number: 2014SP000750

PATIENT
  Age: 58 Year
  Sex: Female
  Weight: 93.7 kg

DRUGS (21)
  1. CYTARABINE [Suspect]
     Indication: ACUTE MYELOID LEUKAEMIA
     Route: 042
     Dates: start: 20131214, end: 20131220
  2. DAUNORUBICIN [Suspect]
     Indication: ACUTE MYELOID LEUKAEMIA
     Route: 040
     Dates: start: 20131214, end: 20131216
  3. ACYCLOVIR /00587301/ [Concomitant]
     Indication: PROPHYLAXIS
     Route: 048
     Dates: start: 20131204
  4. AZITHROMYCIN [Concomitant]
     Indication: PROPHYLAXIS
     Route: 048
     Dates: start: 20140202, end: 20140206
  5. CEFEPIME [Concomitant]
     Route: 042
     Dates: start: 20140201
  6. ENOXAPARIN [Concomitant]
     Indication: PROPHYLAXIS
     Route: 058
     Dates: start: 20140131, end: 20140206
  7. FAMOTIDINE [Concomitant]
     Indication: PROPHYLAXIS
     Route: 048
     Dates: start: 20131204, end: 20140203
  8. INSULIN GLARGINE [Concomitant]
     Indication: TYPE 2 DIABETES MELLITUS
     Route: 058
  9. POSACONAZOLE [Concomitant]
     Indication: PROPHYLAXIS
     Route: 048
     Dates: start: 20140202
  10. VANCOMYCIN [Concomitant]
     Indication: PROPHYLAXIS
     Route: 042
     Dates: start: 20130203, end: 20140205
  11. TESSALON PERLE [Concomitant]
     Route: 048
  12. COLACE [Concomitant]
     Route: 048
  13. HEPARIN [Concomitant]
     Route: 058
  14. BACTRIM [Concomitant]
     Route: 048
  15. TRIAMCINOLONE [Concomitant]
     Route: 061
  16. ALBUTEROL /00139502/ [Concomitant]
     Route: 055
  17. RESTORIL /00393701/ [Concomitant]
     Route: 048
  18. DOXYCYCLINE [Concomitant]
     Indication: PNEUMONITIS
     Route: 048
     Dates: start: 20140131, end: 20140131
  19. CEFEPIME [Concomitant]
     Indication: PNEUMONITIS
     Route: 042
     Dates: start: 20140201, end: 20140210
  20. LEVALBUTEROL [Concomitant]
     Indication: PNEUMONITIS
     Dates: start: 20140131, end: 20140203
  21. LINEZOLID [Concomitant]
     Indication: PNEUMONITIS
     Route: 042
     Dates: start: 20140206, end: 20140206

REACTIONS (9)
  - Pneumonitis [Recovered/Resolved with Sequelae]
  - Dyspnoea [Recovered/Resolved]
  - Cough [Recovering/Resolving]
  - Pneumonia [Unknown]
  - Pyrexia [Recovered/Resolved]
  - Respiratory distress [Unknown]
  - Hypotension [Unknown]
  - Renal failure acute [Unknown]
  - Electrocardiogram QT prolonged [Unknown]
